FAERS Safety Report 6654051-7 (Version None)
Quarter: 2010Q1

REPORT INFORMATION
  Report Type: 
  Country: None (occurrence: None)
  Receive Date: 20100324
  Receipt Date: 20100312
  Transmission Date: 20100710
  Serious: Yes (Hospitalization)
  Sender: FDA-Public Use
  Company Number: 003419

PATIENT
  Sex: Female
  Weight: 83 kg

DRUGS (8)
  1. CERTOLIZUMAB PEGOL (CERTOLIZUMAB PEGOL) [Suspect]
     Indication: RHEUMATOID ARTHRITIS
     Dosage: SEE IMAGE
     Route: 058
     Dates: start: 20060110, end: 20060627
  2. CERTOLIZUMAB PEGOL (CERTOLIZUMAB PEGOL) [Suspect]
     Indication: RHEUMATOID ARTHRITIS
     Dosage: SEE IMAGE
     Route: 058
     Dates: start: 20060627, end: 20071113
  3. CERTOLIZUMAB PEGOL (CERTOLIZUMAB PEGOL) [Suspect]
     Indication: RHEUMATOID ARTHRITIS
     Dosage: SEE IMAGE
     Route: 058
     Dates: start: 20071127, end: 20091124
  4. METHOTREXATE [Concomitant]
  5. DICLOFENAC SODIUM [Concomitant]
  6. FOLIC ACID [Concomitant]
  7. ENALAPRIL MALEATE [Concomitant]
  8. JEANINE /01257001/ [Concomitant]

REACTIONS (4)
  - ANAEMIA [None]
  - BREAST CANCER STAGE I [None]
  - FIBROADENOMA OF BREAST [None]
  - THROMBOCYTOPENIA [None]
